FAERS Safety Report 10058505 (Version 1)
Quarter: 2014Q2

REPORT INFORMATION
  Report Type: Spontaneous
  Country: US (occurrence: US)
  Receive Date: 20140404
  Receipt Date: 20140404
  Transmission Date: 20141212
  Serious: Yes (Hospitalization)
  Sender: FDA-Public Use
  Company Number: US-BAYER-2014-049602

PATIENT
  Age: 26 Year
  Sex: Female

DRUGS (4)
  1. YASMIN [Suspect]
  2. OMNICEF [Concomitant]
  3. ZITHROMAX [Concomitant]
  4. PERCOCET [Concomitant]

REACTIONS (1)
  - Deep vein thrombosis [None]
